FAERS Safety Report 9207543 (Version 2)
Quarter: 2014Q3

REPORT INFORMATION
  Report Type: Spontaneous
  Country: AR (occurrence: AR)
  Receive Date: 20130403
  Receipt Date: 20140731
  Transmission Date: 20150326
  Serious: Yes (Death, Congenital Anomaly)
  Sender: FDA-Public Use
  Company Number: AR-ROCHE-1207002

PATIENT
  Sex: Male

DRUGS (1)
  1. ACTEMRA [Suspect]
     Active Substance: TOCILIZUMAB
     Indication: RHEUMATOID ARTHRITIS
     Route: 065

REACTIONS (5)
  - Heart disease congenital [Fatal]
  - Cardiac failure [Fatal]
  - Maternal exposure timing unspecified [Unknown]
  - Nervous system disorder [Not Recovered/Not Resolved]
  - Anorectal agenesis [Recovered/Resolved]
